FAERS Safety Report 5027230-2 (Version None)
Quarter: 2006Q2

REPORT INFORMATION
  Report Type: 
  Country: None (occurrence: None)
  Receive Date: 20060512
  Receipt Date: 20060206
  Transmission Date: 20061013
  Serious: No
  Sender: FDA-Public Use
  Company Number: 200610693BWH

PATIENT
  Sex: Female

DRUGS (2)
  1. NEXAVAR [Suspect]
     Dosage: SEE IMAGE
     Route: 048
     Dates: start: 20060126
  2. NEXAVAR [Suspect]
     Dosage: SEE IMAGE
     Route: 048
     Dates: start: 20060203

REACTIONS (5)
  - DECREASED ACTIVITY [None]
  - INSOMNIA [None]
  - PAIN OF SKIN [None]
  - PRURITUS [None]
  - RASH [None]
